FAERS Safety Report 4617569-4 (Version None)
Quarter: 2005Q1

REPORT INFORMATION
  Report Type: 
  Country: None (occurrence: None)
  Receive Date: 20050324
  Receipt Date: 20050317
  Transmission Date: 20050727
  Serious: Yes (Death, Hospitalization)
  Sender: FDA-Public Use
  Company Number: EMADSS2003003754

PATIENT
  Sex: Male
  Weight: 50.4 kg

DRUGS (8)
  1. REMINYL [Suspect]
     Route: 049
     Dates: start: 20030425
  2. ZOPICLONE [Concomitant]
     Indication: INSOMNIA
     Route: 065
  3. MEPROBAMATE [Concomitant]
     Indication: AGITATION
     Route: 065
  4. MEPROBAMATE [Concomitant]
     Indication: ANXIETY
     Route: 065
  5. FOLIC ACID [Concomitant]
     Route: 065
  6. CALCIUM WITH VITAMIN D CALCIFEROL [Concomitant]
     Route: 065
  7. CALCIUM WITH VITAMIN D CALCIFEROL [Concomitant]
     Route: 065
  8. CALCIUM WITH VITAMIN D CALCIFEROL [Concomitant]
     Indication: CALCIUM DEFICIENCY
     Route: 065

REACTIONS (2)
  - HAEMORRHAGIC STROKE [None]
  - RESPIRATORY FAILURE [None]
